FAERS Safety Report 11773239 (Version 1)
Quarter: 2015Q4

REPORT INFORMATION
  Report Type: Spontaneous
  Country: CN (occurrence: CN)
  Receive Date: 20151124
  Receipt Date: 20151124
  Transmission Date: 20160304
  Serious: Yes (Death, Other)
  Sender: FDA-Public Use
  Company Number: CN-BAYER-2015-474139

PATIENT
  Age: 48 Year
  Sex: Male

DRUGS (1)
  1. ULTRAVIST [Suspect]
     Active Substance: IOPROMIDE
     Indication: COMPUTERISED TOMOGRAM
     Dosage: 80 ML, ONCE
     Route: 042
     Dates: start: 20151119, end: 20151119

REACTIONS (8)
  - Loss of consciousness [Fatal]
  - Seizure [None]
  - Hyperhidrosis [None]
  - Blood pressure decreased [Fatal]
  - Eyelid oedema [None]
  - Pallor [None]
  - Restlessness [None]
  - Conjunctival hyperaemia [None]

NARRATIVE: CASE EVENT DATE: 20151119
